FAERS Safety Report 5532494-2 (Version None)
Quarter: 2007Q4

REPORT INFORMATION
  Report Type: 
  Country: None (occurrence: None)
  Receive Date: 20071203
  Receipt Date: 20071121
  Transmission Date: 20080405
  Serious: Yes (Other)
  Sender: FDA-Public Use
  Company Number: US-PFIZER INC-2007098646

PATIENT
  Sex: Female
  Weight: 61.363 kg

DRUGS (1)
  1. CHANTIX [Suspect]
     Indication: SMOKING CESSATION THERAPY
     Route: 048
     Dates: start: 20070924, end: 20071119

REACTIONS (9)
  - ABNORMAL DREAMS [None]
  - DEPRESSION [None]
  - EMOTIONAL DISTRESS [None]
  - INSOMNIA [None]
  - NAUSEA [None]
  - NEGATIVE THOUGHTS [None]
  - NIGHTMARE [None]
  - SUICIDAL IDEATION [None]
  - VOMITING [None]
